FAERS Safety Report 13261076 (Version 2)
Quarter: 2017Q1

REPORT INFORMATION
  Report Type: Report from Study
  Country: US (occurrence: US)
  Receive Date: 20170222
  Receipt Date: 20170329
  Transmission Date: 20170428
  Serious: No
  Sender: FDA-Public Use
  Company Number: PHEH2017US005341

PATIENT
  Sex: Female

DRUGS (1)
  1. COSENTYX [Suspect]
     Active Substance: SECUKINUMAB
     Indication: PRODUCT USED FOR UNKNOWN INDICATION
     Dosage: 300 MG, QMO
     Route: 065
     Dates: start: 20160709

REACTIONS (1)
  - Drug ineffective [Unknown]
